FAERS Safety Report 20937359 (Version 2)
Quarter: 2022Q3

REPORT INFORMATION
  Report Type: Spontaneous
  Country: ES (occurrence: ES)
  Receive Date: 20220609
  Receipt Date: 20220707
  Transmission Date: 20221027
  Serious: Yes (Hospitalization)
  Sender: FDA-Public Use
  Company Number: ES-PFIZER INC-202200731462

PATIENT
  Age: 59 Year
  Sex: Female

DRUGS (6)
  1. ARIPIPRAZOLE [Suspect]
     Active Substance: ARIPIPRAZOLE
     Indication: Major depression
     Dosage: 5 MILLIGRAM, ONCE A DAY
     Route: 065
  2. VENLAFAXINE [Suspect]
     Active Substance: VENLAFAXINE HYDROCHLORIDE
     Indication: Major depression
     Dosage: 150 MILLIGRAM, ONCE A DAY
     Route: 065
  3. VENLAFAXINE [Suspect]
     Active Substance: VENLAFAXINE HYDROCHLORIDE
     Dosage: 225 MILLIGRAM, ONCE A DAY
     Route: 065
  4. QUETIAPINE [Suspect]
     Active Substance: QUETIAPINE
     Indication: Major depression
     Dosage: 100 MILLIGRAM, ONCE A DAY (NIGHTLY)
     Route: 065
  5. QUETIAPINE [Suspect]
     Active Substance: QUETIAPINE
     Dosage: 50 MILLIGRAM, ONCE A DAY (NIGHTLY)
     Route: 065
  6. LORAZEPAM [Suspect]
     Active Substance: LORAZEPAM
     Indication: Major depression
     Dosage: 6 MILLIGRAM, ONCE A DAY
     Route: 065

REACTIONS (14)
  - Delusional disorder, unspecified type [Recovered/Resolved]
  - Mental disorder [Recovered/Resolved]
  - Anxiety [Recovered/Resolved]
  - Cotard^s syndrome [Recovered/Resolved]
  - Selective eating disorder [Recovered/Resolved]
  - Waxy flexibility [Recovered/Resolved]
  - Confusional state [Recovered/Resolved]
  - Mutism [Recovered/Resolved]
  - Speech disorder [Recovered/Resolved]
  - Immunisation [Unknown]
  - Psychomotor retardation [Recovered/Resolved]
  - Product use in unapproved indication [Unknown]
  - Drug resistance [Unknown]
  - Drug ineffective [Unknown]

NARRATIVE: CASE EVENT DATE: 20200101
